FAERS Safety Report 24773976 (Version 1)
Quarter: 2024Q4

REPORT INFORMATION
  Report Type: Spontaneous
  Country: US (occurrence: US)
  Receive Date: 20241225
  Receipt Date: 20241225
  Transmission Date: 20250114
  Serious: No
  Sender: SANOFI AVENTIS
  Company Number: US-SA-2024SA378858

PATIENT
  Sex: Male
  Weight: 72.27 kg

DRUGS (5)
  1. DUPIXENT [Suspect]
     Active Substance: DUPILUMAB
     Indication: Ill-defined disorder
     Dosage: 300 MG, QOW
     Route: 065
     Dates: start: 20200219
  2. CITALOPRAM HYDROBROMIDE [Concomitant]
     Active Substance: CITALOPRAM HYDROBROMIDE
     Dosage: UNK (CITALOPRAM HBR 10 MG/5 ML SOLN)
  3. XHANCE [Concomitant]
     Active Substance: FLUTICASONE PROPIONATE
     Dosage: UNK (XHANCE 93 MCG AER BR.ACT)
  4. DIVALPROEX SODIUM [Concomitant]
     Active Substance: DIVALPROEX SODIUM
     Dosage: UNK (DIVALPROEX SODIUM 100 % POWDER)
  5. ABILIFY [Concomitant]
     Active Substance: ARIPIPRAZOLE
     Dosage: UNK

REACTIONS (2)
  - Symptom recurrence [Unknown]
  - Intentional dose omission [Unknown]
